FAERS Safety Report 4277754-0 (Version None)
Quarter: 2004Q1

REPORT INFORMATION
  Report Type: 
  Country: None (occurrence: None)
  Receive Date: 20040121
  Receipt Date: 20040109
  Transmission Date: 20041129
  Serious: Yes (Hospitalization)
  Sender: FDA-Public Use
  Company Number: 2003035757

PATIENT
  Age: 69 Year
  Sex: Female

DRUGS (11)
  1. LIPITOR [Suspect]
     Indication: HYPERLIPIDAEMIA
     Dosage: 10 MG (DAILY), ORAL
     Route: 048
     Dates: start: 20030204, end: 20030630
  2. GLYBURIDE [Concomitant]
  3. VOGLIBOSE (VOGLIBOSE) [Concomitant]
  4. FLUTICASONE PROPIONATE [Concomitant]
  5. GLIMEPIRIDE [Concomitant]
  6. NILVADIPINE (NILVADIPINE) [Concomitant]
  7. THEOPHYLLINE [Concomitant]
  8. EPINASTINE HYDROCHLORIDE (EPINASTINE HYDROCHLORIDE) [Concomitant]
  9. DIMETICONE (DIMETICONE) [Concomitant]
  10. FLUNITRAZEPAM (FLUNITRAZEPAM) [Concomitant]
  11. TULOBUTEROL HYDROCHLORIDE (TULOBUTEROL HYDROCHLORIDE) [Concomitant]

REACTIONS (3)
  - DIABETES MELLITUS [None]
  - HEPATIC FUNCTION ABNORMAL [None]
  - INFECTION [None]
